FAERS Safety Report 9904218 (Version 1)
Quarter: 2014Q1

REPORT INFORMATION
  Report Type: Spontaneous
  Country: AU (occurrence: AU)
  Receive Date: 20140218
  Receipt Date: 20140218
  Transmission Date: 20141002
  Serious: Yes (Death, Life-Threatening)
  Sender: FDA-Public Use
  Company Number: AU-009507513-1402AUS005389

PATIENT
  Age: 60 Year
  Sex: Female

DRUGS (4)
  1. PEGATRON [Suspect]
     Indication: HEPATITIS C
     Dosage: UNK
     Dates: start: 20130731, end: 20131122
  2. BOCEPREVIR [Suspect]
     Indication: HEPATITIS C
     Dosage: STRENGTH: 2250 UNITS UNKNOWN
     Route: 048
     Dates: end: 20131122
  3. RIBAVIRIN [Suspect]
     Indication: HEPATITIS C
     Dosage: UNK
     Dates: start: 20130731, end: 20131122
  4. DESVENLAFAXINE [Concomitant]
     Indication: DEPRESSION
     Dosage: UNK

REACTIONS (8)
  - Intentional overdose [Fatal]
  - Rash [Unknown]
  - Gastrooesophageal reflux disease [Unknown]
  - Herpes virus infection [Unknown]
  - Orthostatic hypotension [Unknown]
  - Dizziness [Unknown]
  - No therapeutic response [Unknown]
  - Treatment noncompliance [Unknown]
